FAERS Safety Report 12919550 (Version 1)
Quarter: 2016Q4

REPORT INFORMATION
  Report Type: Spontaneous
  Country: US (occurrence: US)
  Receive Date: 20161108
  Receipt Date: 20161108
  Transmission Date: 20170207
  Serious: No
  Sender: FDA-Public Use
  Company Number: US-BAYER-2016-213258

PATIENT
  Age: 73 Year
  Sex: Female
  Weight: 90.7 kg

DRUGS (2)
  1. CLARITIN [Suspect]
     Active Substance: LORATADINE
     Indication: NASOPHARYNGITIS
  2. CLARITIN [Suspect]
     Active Substance: LORATADINE
     Indication: HYPERSENSITIVITY
     Dosage: 1 DF, QD
     Route: 048
     Dates: start: 2013, end: 20161019

REACTIONS (2)
  - Incorrect drug administration duration [None]
  - Rash pruritic [Recovering/Resolving]

NARRATIVE: CASE EVENT DATE: 201609
